FAERS Safety Report 10112022 (Version 3)
Quarter: 2014Q3

REPORT INFORMATION
  Report Type: Report from Study
  Country: GB (occurrence: GB)
  Receive Date: 20140425
  Receipt Date: 20140905
  Transmission Date: 20150326
  Serious: Yes (Other)
  Sender: FDA-Public Use
  Company Number: GB-US-EMD SERONO, INC.-7268681

PATIENT
  Age: 47 Year
  Sex: Female
  Weight: 52 kg

DRUGS (12)
  1. BISOPROLOL [Concomitant]
     Active Substance: BISOPROLOL
     Indication: ATRIAL FIBRILLATION
     Dosage: 2.5 DAILY (UNIT UNSPECIFIED)
     Route: 048
     Dates: start: 20120801
  2. WARFARIN [Concomitant]
     Active Substance: WARFARIN
     Indication: THROMBOSIS
     Dosage: 2.4 (UNSPECIFIED UNITS)
     Route: 048
     Dates: start: 20120806
  3. GABAPENTIN. [Concomitant]
     Active Substance: GABAPENTIN
     Indication: NEURALGIA
     Route: 048
     Dates: start: 20130103
  4. DOMPERIDON                         /00498202/ [Concomitant]
     Indication: NAUSEA
     Route: 048
     Dates: start: 20121022
  5. REBIF [Suspect]
     Active Substance: INTERFERON BETA-1A
     Indication: RELAPSING-REMITTING MULTIPLE SCLEROSIS
     Route: 058
     Dates: start: 20130307, end: 201403
  6. REBIF [Suspect]
     Active Substance: INTERFERON BETA-1A
     Route: 058
     Dates: start: 20140728, end: 20140813
  7. ANASTROZOLE. [Concomitant]
     Active Substance: ANASTROZOLE
     Indication: BREAST CANCER
     Route: 048
     Dates: start: 20121002
  8. ANUSOL                             /00117301/ [Suspect]
     Active Substance: BALSAM PERU\BISMUTH HYDROXIDE\BISMUTH SUBGALLATE\BORIC ACID\ZINC OXIDE
     Indication: HAEMORRHOIDS
     Route: 061
     Dates: end: 201401
  9. ANUSOL                             /00117301/ [Suspect]
     Active Substance: BALSAM PERU\BISMUTH HYDROXIDE\BISMUTH SUBGALLATE\BORIC ACID\ZINC OXIDE
     Route: 061
     Dates: end: 20140206
  10. ADCAL-D3 [Concomitant]
     Active Substance: CALCIUM CARBONATE\CHOLECALCIFEROL
     Indication: BONE DENSITY ABNORMAL
     Route: 048
     Dates: start: 20121018
  11. MEFENAMIC ACID. [Concomitant]
     Active Substance: MEFENAMIC ACID
     Indication: DYSMENORRHOEA
     Route: 048
     Dates: start: 20040130, end: 20130130
  12. FESOTERODINE [Concomitant]
     Active Substance: FESOTERODINE
     Indication: BLADDER DISORDER
     Route: 048
     Dates: start: 20111121

REACTIONS (10)
  - Urticaria [Not Recovered/Not Resolved]
  - Angioedema [Not Recovered/Not Resolved]
  - Lip swelling [Recovered/Resolved]
  - Urticaria [Unknown]
  - Swelling face [Recovering/Resolving]
  - Throat tightness [Unknown]
  - Haemorrhoids [Not Recovered/Not Resolved]
  - Dyspnoea [Unknown]
  - Rash [Not Recovered/Not Resolved]
  - Rash pruritic [Not Recovered/Not Resolved]

NARRATIVE: CASE EVENT DATE: 20130313
